FAERS Safety Report 18353682 (Version 1)
Quarter: 2020Q4

REPORT INFORMATION
  Report Type: Spontaneous
  Country: US (occurrence: US)
  Receive Date: 20201006
  Receipt Date: 20201006
  Transmission Date: 20210114
  Serious: No
  Sender: FDA-Public Use
  Company Number: US-ROCHE-2270872

PATIENT
  Age: 50 Year
  Sex: Male

DRUGS (3)
  1. ZELBORAF [Suspect]
     Active Substance: VEMURAFENIB
     Indication: COLON CANCER
     Route: 048
     Dates: start: 20190221
  2. ZELBORAF [Suspect]
     Active Substance: VEMURAFENIB
     Route: 048
     Dates: start: 20190221
  3. ZELBORAF [Suspect]
     Active Substance: VEMURAFENIB
     Indication: COLON CANCER
     Route: 048
     Dates: start: 20190220

REACTIONS (10)
  - Somnolence [Unknown]
  - Arthralgia [Unknown]
  - Off label use [Unknown]
  - Bone pain [Unknown]
  - Rash [Unknown]
  - Myalgia [Unknown]
  - Rash [Unknown]
  - Intentional product use issue [Unknown]
  - Bone pain [Unknown]
  - Myalgia [Unknown]

NARRATIVE: CASE EVENT DATE: 20190822
